FAERS Safety Report 5029980-0 (Version None)
Quarter: 2006Q2

REPORT INFORMATION
  Report Type: 
  Country: None (occurrence: None)
  Receive Date: 20060620
  Receipt Date: 20060606
  Transmission Date: 20061013
  Serious: No
  Sender: FDA-Public Use
  Company Number: US-MERCK-0606USA01050

PATIENT
  Age: 59 Year
  Sex: Female

DRUGS (5)
  1. SINGULAIR [Suspect]
     Indication: ASTHMA
     Route: 048
     Dates: start: 20060301, end: 20060101
  2. SINGULAIR [Suspect]
     Route: 048
  3. XOLAIR [Suspect]
     Route: 065
  4. PREDNISONE [Concomitant]
     Route: 065
  5. FLOXIN [Concomitant]
     Indication: EAR INFECTION
     Route: 001
     Dates: start: 19960101

REACTIONS (6)
  - DEAFNESS UNILATERAL [None]
  - DYSPNOEA [None]
  - HYPOACUSIS [None]
  - STAPHYLOCOCCAL INFECTION [None]
  - SWELLING FACE [None]
  - TINNITUS [None]
